FAERS Safety Report 16137985 (Version 6)
Quarter: 2024Q2

REPORT INFORMATION
  Report Type: Report from Study
  Country: JP (occurrence: JP)
  Receive Date: 20190330
  Receipt Date: 20240626
  Transmission Date: 20240716
  Serious: Yes (Life-Threatening)
  Sender: FDA-Public Use
  Company Number: JP-GSKNCCC-A040Y00000LQGJVQA1

PATIENT

DRUGS (10)
  1. BELIMUMAB [Suspect]
     Active Substance: BELIMUMAB
     Indication: Systemic lupus erythematosus
     Dosage: 520 MG, 1D
     Route: 041
     Dates: start: 20180207, end: 20180207
  2. PREDNISOLONE [Concomitant]
     Active Substance: PREDNISOLONE
     Indication: Systemic lupus erythematosus
     Dosage: 10 MG, 1D
     Dates: start: 20180207
  3. SULFAMETHOXAZOLE\TRIMETHOPRIM [Concomitant]
     Active Substance: SULFAMETHOXAZOLE\TRIMETHOPRIM
     Indication: Antifungal prophylaxis
     Dosage: UNK
  4. ELDECALCITOL [Concomitant]
     Active Substance: ELDECALCITOL
     Indication: Osteoporosis prophylaxis
     Dosage: UNK
  5. FAMOTIDINE [Concomitant]
     Active Substance: FAMOTIDINE
     Indication: Prophylaxis against gastrointestinal ulcer
     Dosage: UNK
  6. SODIUM FERROUS CITRATE [Concomitant]
     Active Substance: SODIUM FERROUS CITRATE
     Indication: Systemic lupus erythematosus
     Dosage: UNK
  7. URSO [Concomitant]
     Active Substance: URSODIOL
     Indication: Systemic lupus erythematosus
     Dosage: UNK
  8. CILNIDIPINE [Concomitant]
     Active Substance: CILNIDIPINE
     Indication: Systemic lupus erythematosus
     Dosage: UNK
  9. METHYLCOBALAMIN [Concomitant]
     Active Substance: METHYLCOBALAMIN
     Indication: Systemic lupus erythematosus
     Dosage: UNK
  10. SITAFLOXACIN [Concomitant]
     Active Substance: SITAFLOXACIN
     Indication: Urinary tract infection
     Dosage: UNK

REACTIONS (1)
  - Infusion related reaction [Recovered/Resolved]

NARRATIVE: CASE EVENT DATE: 20180207
